FAERS Safety Report 6581753-3 (Version None)
Quarter: 2010Q1

REPORT INFORMATION
  Report Type: 
  Country: None (occurrence: None)
  Receive Date: 20100215
  Receipt Date: 20100203
  Transmission Date: 20100710
  Serious: Yes (Hospitalization)
  Sender: FDA-Public Use
  Company Number: PHHY2010IE02234

PATIENT
  Sex: Male

DRUGS (1)
  1. CLOZARIL [Suspect]
     Indication: SCHIZOPHRENIA
     Dosage: 250 MG, UNK
     Route: 048
     Dates: start: 20020107, end: 20100106

REACTIONS (4)
  - ABDOMINAL INFECTION [None]
  - COLOSTOMY [None]
  - INTESTINAL OBSTRUCTION [None]
  - LAPAROTOMY [None]
